FAERS Safety Report 10452877 (Version 2)
Quarter: 2014Q3

REPORT INFORMATION
  Report Type: Spontaneous
  Country: US (occurrence: US)
  Receive Date: 20140915
  Receipt Date: 20140926
  Transmission Date: 20150326
  Serious: Yes (Hospitalization)
  Sender: FDA-Public Use
  Company Number: US-BAYER-2014-137252

PATIENT
  Age: 25 Year
  Sex: Female
  Weight: 60.77 kg

DRUGS (28)
  1. MIRENA [Suspect]
     Active Substance: LEVONORGESTREL
     Indication: MENORRHAGIA
  2. MACROBID [Concomitant]
     Active Substance: NITROFURANTOIN\NITROFURANTOIN MONOHYDRATE
     Dosage: 100 MG, UNK
     Route: 048
  3. FLEXERIL [Concomitant]
     Active Substance: CYCLOBENZAPRINE HYDROCHLORIDE
     Dosage: 10 MG, UNK
     Route: 048
  4. PROPOFOL. [Concomitant]
     Active Substance: PROPOFOL
     Indication: UTERINE DILATION AND CURETTAGE
     Dosage: 150 MG, UNK
     Dates: start: 20131007
  5. ACETAMINOPHEN. [Concomitant]
     Active Substance: ACETAMINOPHEN
     Indication: UTERINE DILATION AND CURETTAGE
     Dosage: 1000 MG, UNK
     Route: 042
     Dates: start: 20131007
  6. LORTAB [Concomitant]
     Active Substance: ACETAMINOPHEN\HYDROCODONE BITARTRATE
     Dosage: 5-500 MG
     Route: 048
  7. MIRENA [Suspect]
     Active Substance: LEVONORGESTREL
     Indication: CONTRACEPTION
     Dosage: 20 MCG/24HR, CONT
     Route: 015
     Dates: start: 20131025, end: 20131115
  8. CYCLOBENZAPRINE [Concomitant]
     Active Substance: CYCLOBENZAPRINE
     Dosage: 10 MG, UNK
     Route: 048
  9. PITOCIN [Concomitant]
     Active Substance: OXYTOCIN
     Dosage: 30 UNITS
     Route: 042
     Dates: start: 20130908
  10. MIDAZOLAM [Concomitant]
     Active Substance: MIDAZOLAM\MIDAZOLAM HYDROCHLORIDE
     Indication: UTERINE DILATION AND CURETTAGE
     Dosage: 2 MG, UNK
     Route: 042
     Dates: start: 20131007
  11. ROCURONIUM [Concomitant]
     Active Substance: ROCURONIUM BROMIDE
     Indication: UTERINE DILATION AND CURETTAGE
     Dosage: 30 MG, UNK
     Route: 042
     Dates: start: 20131007
  12. CEFAZOLIN [Concomitant]
     Active Substance: CEFAZOLIN
     Indication: UTERINE DILATION AND CURETTAGE
     Dosage: 1000 MG, UNK
     Route: 042
     Dates: start: 20131007
  13. KETOROLAC [Concomitant]
     Active Substance: KETOROLAC\KETOROLAC TROMETHAMINE
     Indication: UTERINE DILATION AND CURETTAGE
     Dosage: 30 MG, UNK
     Route: 042
     Dates: start: 20131007
  14. ONDANSETRON [Concomitant]
     Active Substance: ONDANSETRON
     Indication: UTERINE DILATION AND CURETTAGE
     Dosage: 4 MG, UNK
     Route: 042
     Dates: start: 20131007
  15. MOBIC [Concomitant]
     Active Substance: MELOXICAM
     Dosage: 7.5 MG, UNK
     Route: 048
  16. PEPCID [Concomitant]
     Active Substance: FAMOTIDINE
     Dosage: 20 MG, UNK
     Route: 048
  17. TYLENOL WITH CODEINE [Concomitant]
     Active Substance: ACETAMINOPHEN\CODEINE PHOSPHATE
     Dosage: 300-30 MG
     Route: 048
     Dates: start: 20130910
  18. LIDOCAINE. [Concomitant]
     Active Substance: LIDOCAINE
     Indication: UTERINE DILATION AND CURETTAGE
     Dosage: 60 MG, UNK
     Route: 042
     Dates: start: 20131007
  19. KETOROLAC [Concomitant]
     Active Substance: KETOROLAC\KETOROLAC TROMETHAMINE
     Indication: UTERINE DILATION AND CURETTAGE
     Dosage: 30
     Route: 030
     Dates: start: 20131007
  20. ZOLOFT [Concomitant]
     Active Substance: SERTRALINE HYDROCHLORIDE
     Dosage: 25 MG, UNK
     Route: 048
  21. METROGEL [Concomitant]
     Active Substance: METRONIDAZOLE
     Dosage: 0.75 %, UNK
     Route: 067
  22. ZOFRAN [Concomitant]
     Active Substance: ONDANSETRON HYDROCHLORIDE
     Dosage: 8 MG, UNK
     Route: 048
  23. DEXAMETHASONE. [Concomitant]
     Active Substance: DEXAMETHASONE
     Indication: UTERINE DILATION AND CURETTAGE
     Dosage: 4 MG, UNK
     Route: 042
     Dates: start: 20131007
  24. METHERGINE [Concomitant]
     Active Substance: METHYLERGONOVINE MALEATE
     Dosage: 0.2 MG, UNK
     Route: 030
     Dates: start: 20130908
  25. FENTANYL. [Concomitant]
     Active Substance: FENTANYL
     Indication: UTERINE DILATION AND CURETTAGE
     Dosage: 50 MCG
     Route: 042
     Dates: start: 20131007
  26. DOXYCYCLINE. [Concomitant]
     Active Substance: DOXYCYCLINE
     Dosage: 100 MG, UNK
     Route: 048
  27. PROAIR HFA [Concomitant]
     Active Substance: ALBUTEROL SULFATE
     Route: 045
  28. IRON [Concomitant]
     Active Substance: IRON
     Route: 048

REACTIONS (6)
  - Injury [None]
  - Device issue [None]
  - Pain [None]
  - Medical device pain [None]
  - Activities of daily living impaired [None]
  - Uterine perforation [None]

NARRATIVE: CASE EVENT DATE: 20131113
